FAERS Safety Report 22590945 (Version 1)
Quarter: 2023Q2

REPORT INFORMATION
  Report Type: Spontaneous
  Country: GB (occurrence: None)
  Receive Date: 20230612
  Receipt Date: 20230612
  Transmission Date: 20230722
  Serious: Yes (Other)
  Sender: FDA-Public Use
  Company Number: 2023A135465

PATIENT
  Age: 81 Year
  Sex: Female

DRUGS (1)
  1. OMEPRAZOLE [Suspect]
     Active Substance: OMEPRAZOLE
     Route: 048

REACTIONS (2)
  - Cerebellar syndrome [Recovered/Resolved]
  - Hypomagnesaemia [Recovered/Resolved]
